FAERS Safety Report 7689536-8 (Version None)
Quarter: 2011Q3

REPORT INFORMATION
  Report Type: 
  Country: None (occurrence: None)
  Receive Date: 20110817
  Receipt Date: 20110812
  Transmission Date: 20111222
  Serious: Yes (Hospitalization)
  Sender: FDA-Public Use
  Company Number: US-ABBOTT-11P-163-0846131-00

PATIENT
  Age: 30 Year
  Sex: Male

DRUGS (7)
  1. HUMIRA [Suspect]
     Dosage: LOADING DOSE
     Dates: start: 20110811, end: 20110811
  2. HUMIRA [Suspect]
     Indication: CROHN'S DISEASE
     Dosage: LOADING DOSE
     Dates: start: 20110728, end: 20110728
  3. PROTONICS [Concomitant]
     Indication: CROHN'S DISEASE
  4. OPIUM TINCTURE [Concomitant]
     Indication: GASTROINTESTINAL STOMA COMPLICATION
  5. PROMETHAZINE [Concomitant]
     Indication: NAUSEA
  6. HUMIRA [Suspect]
  7. DEPAKOTE [Suspect]
     Indication: BIPOLAR DISORDER

REACTIONS (6)
  - NAUSEA [None]
  - SMALL INTESTINAL HAEMORRHAGE [None]
  - PETECHIAE [None]
  - ABDOMINAL PAIN [None]
  - CROHN'S DISEASE [None]
  - GASTROINTESTINAL STOMA COMPLICATION [None]
